FAERS Safety Report 4267264-9 (Version None)
Quarter: 2004Q1

REPORT INFORMATION
  Report Type: 
  Country: None (occurrence: None)
  Receive Date: 20040107
  Receipt Date: 20031225
  Transmission Date: 20041129
  Serious: Yes (Death, Life-Threatening)
  Sender: FDA-Public Use
  Company Number: 2003AP04090

PATIENT
  Age: 88 Year
  Sex: Male

DRUGS (6)
  1. IRESSA [Suspect]
     Indication: LUNG ADENOCARCINOMA
     Dosage: 250 MG DAILY PO
     Route: 048
     Dates: start: 20031103, end: 20031110
  2. RESPLEN [Concomitant]
  3. CLARITH [Concomitant]
  4. CODEINE PHOSPHATE [Concomitant]
  5. MAGNESIUM OXIDE [Concomitant]
  6. PROMAC [Concomitant]

REACTIONS (17)
  - ANAEMIA [None]
  - BLOOD PRESSURE DECREASED [None]
  - CONDITION AGGRAVATED [None]
  - DECREASED APPETITE [None]
  - DYSPNOEA [None]
  - EATING DISORDER [None]
  - HAEMOPTYSIS [None]
  - HAEMORRHAGE [None]
  - HEPATIC FAILURE [None]
  - HEPATIC FUNCTION ABNORMAL [None]
  - HYPERKALAEMIA [None]
  - LYMPHANGIOSIS CARCINOMATOSA [None]
  - MALIGNANT NEOPLASM PROGRESSION [None]
  - MULTI-ORGAN FAILURE [None]
  - PLATELET COUNT DECREASED [None]
  - PLEURAL EFFUSION [None]
  - RENAL FAILURE ACUTE [None]
